FAERS Safety Report 8124554-7 (Version None)
Quarter: 2012Q1

REPORT INFORMATION
  Report Type: 
  Country: None (occurrence: None)
  Receive Date: 20120209
  Receipt Date: 20120201
  Transmission Date: 20120608
  Serious: Yes (Hospitalization, Other)
  Sender: FDA-Public Use
  Company Number: JP-ASTELLAS-2012US001550

PATIENT
  Sex: Female
  Weight: 60 kg

DRUGS (4)
  1. TARCEVA [Suspect]
     Dosage: UNK
     Route: 048
     Dates: start: 20101102, end: 20101102
  2. TARCEVA [Suspect]
     Dosage: UNK
     Route: 048
     Dates: start: 20100921, end: 20101008
  3. TARCEVA [Suspect]
     Indication: LUNG ADENOCARCINOMA
     Dosage: 150 MG, UID/QD
     Route: 048
     Dates: start: 20100826, end: 20100920
  4. TARCEVA [Suspect]
     Dosage: UNK
     Route: 048
     Dates: start: 20101105, end: 20101105

REACTIONS (5)
  - SEPSIS [None]
  - HEPATIC FUNCTION ABNORMAL [None]
  - SKIN DISORDER [None]
  - DIARRHOEA [None]
  - PRURITUS [None]
